FAERS Safety Report 19724713 (Version 2)
Quarter: 2021Q3

REPORT INFORMATION
  Report Type: Spontaneous
  Country: JP (occurrence: JP)
  Receive Date: 20210820
  Receipt Date: 20210902
  Transmission Date: 20211014
  Serious: Yes (Hospitalization)
  Sender: FDA-Public Use
  Company Number: JP-ROCHE-2891677

PATIENT
  Age: 8 Decade
  Sex: Male

DRUGS (1)
  1. BONVIVA [Suspect]
     Active Substance: IBANDRONATE SODIUM
     Indication: OSTEOPOROSIS
     Route: 042
     Dates: start: 20210210, end: 20210623

REACTIONS (2)
  - Lung neoplasm malignant [Recovering/Resolving]
  - Bone deformity [Not Recovered/Not Resolved]

NARRATIVE: CASE EVENT DATE: 20210407
